FAERS Safety Report 8877130 (Version 1)
Quarter: 2012Q4

REPORT INFORMATION
  Report Type: 
  Country: US (occurrence: US)
  Receive Date: 20121029
  Receipt Date: 20121029
  Transmission Date: 20130627
  Serious: Yes (Other)
  Sender: FDA-Public Use
  Company Number: US-PFIZER INC-2012269300

PATIENT
  Age: 66 Year
  Sex: Male
  Weight: 75.28 kg

DRUGS (4)
  1. CHANTIX [Suspect]
     Indication: SMOKING CESSATION THERAPY
     Dosage: 0.5 mg, 1x/day
     Route: 048
     Dates: start: 20121018, end: 20121020
  2. MELOXICAM [Concomitant]
     Indication: PAIN
     Dosage: 7.5 mg, 1x/day
  3. NEURONTIN [Concomitant]
     Dosage: UNK
  4. VITAMIN B12 [Concomitant]
     Indication: ANEMIA
     Dosage: UNK

REACTIONS (4)
  - Mental impairment [Unknown]
  - Amnesia [Unknown]
  - Drug withdrawal syndrome [Unknown]
  - Insomnia [Unknown]
